FAERS Safety Report 25852492 (Version 2)
Quarter: 2025Q4

REPORT INFORMATION
  Report Type: Spontaneous
  Country: US (occurrence: US)
  Receive Date: 20250926
  Receipt Date: 20251230
  Transmission Date: 20260117
  Serious: Yes (Disabling, Other)
  Sender: NOVO NORDISK
  Company Number: US-NOVOPROD-1525850

PATIENT
  Age: 44 Year
  Sex: Female
  Weight: 100.2 kg

DRUGS (5)
  1. OZEMPIC [Suspect]
     Active Substance: SEMAGLUTIDE
     Indication: Type 2 diabetes mellitus
     Dosage: 0.25 MG, QW
     Route: 058
     Dates: start: 20250606, end: 20250912
  2. NOVOLOG MIX 70/30 [Concomitant]
     Active Substance: INSULIN ASPART
     Indication: Type 2 diabetes mellitus
     Dosage: UNK
     Dates: start: 2014
  3. NOVOLOG MIX 70/30 [Concomitant]
     Active Substance: INSULIN ASPART
     Dosage: DOSE INCREASED
     Dates: start: 202504
  4. NOVOLOG MIX 70/30 [Concomitant]
     Active Substance: INSULIN ASPART
     Dosage: DOSE DECREASED
     Dates: start: 202507
  5. METFORMIN [Concomitant]
     Active Substance: METFORMIN HYDROCHLORIDE
     Indication: Product used for unknown indication
     Dosage: UNK
     Dates: start: 2016

REACTIONS (16)
  - Blindness unilateral [Unknown]
  - Eye haemorrhage [Unknown]
  - Vitreous floaters [Not Recovered/Not Resolved]
  - Glaucoma [Recovering/Resolving]
  - Glaucoma [Unknown]
  - Vitreous haemorrhage [Unknown]
  - Nausea [Recovered/Resolved]
  - Hypertension [Unknown]
  - Iris neovascularisation [Unknown]
  - Blood uric acid abnormal [Unknown]
  - Diabetic neuropathy [Unknown]
  - Peripheral swelling [Unknown]
  - Diabetic nephropathy [Unknown]
  - Diabetes mellitus inadequate control [Unknown]
  - Hyperglycaemia [Unknown]
  - Inappropriate schedule of product administration [Not Recovered/Not Resolved]

NARRATIVE: CASE EVENT DATE: 20250709
